FAERS Safety Report 18096067 (Version 1)
Quarter: 2020Q3

REPORT INFORMATION
  Report Type: Report from Study
  Country: US (occurrence: US)
  Receive Date: 20200730
  Receipt Date: 20200730
  Transmission Date: 20201103
  Serious: Yes (Hospitalization)
  Sender: FDA-Public Use
  Company Number: US-EXELIXIS-CABO-20030577

PATIENT
  Age: 69 Year
  Sex: Female

DRUGS (2)
  1. CABOMETYX [Suspect]
     Active Substance: CABOZANTINIB S-MALATE
     Indication: LUNG NEOPLASM MALIGNANT
     Dosage: 60 MG, QD
     Route: 048
     Dates: start: 20200523, end: 20200530
  2. CABOMETYX [Suspect]
     Active Substance: CABOZANTINIB S-MALATE
     Indication: METASTASES TO CENTRAL NERVOUS SYSTEM
     Dosage: 60 MG, QD
     Route: 048
     Dates: start: 20200606, end: 20200723

REACTIONS (11)
  - Dehydration [Unknown]
  - Vomiting [Recovered/Resolved]
  - Fatigue [Unknown]
  - Urinary tract infection [Unknown]
  - Off label use [Unknown]
  - Blood pressure increased [Recovering/Resolving]
  - Asthenia [Unknown]
  - Feeding disorder [Unknown]
  - Diarrhoea [Unknown]
  - Pruritus [Recovered/Resolved]
  - Constipation [Unknown]

NARRATIVE: CASE EVENT DATE: 202005
